FAERS Safety Report 21267947 (Version 2)
Quarter: 2022Q4

REPORT INFORMATION
  Report Type: Spontaneous
  Country: BE (occurrence: BE)
  Receive Date: 20220829
  Receipt Date: 20221008
  Transmission Date: 20230113
  Serious: Yes (Hospitalization)
  Sender: FDA-Public Use
  Company Number: BE-JNJFOC-20220844901

PATIENT
  Sex: Female

DRUGS (14)
  1. IMBRUVICA [Suspect]
     Active Substance: IBRUTINIB
     Indication: Splenic marginal zone lymphoma
     Route: 048
     Dates: start: 20220628, end: 20220728
  2. BETAHISTINE [Concomitant]
     Active Substance: BETAHISTINE
     Indication: Product used for unknown indication
     Dosage: 3X/D 1 TAB OR (MO;MI;AV)
     Dates: start: 20220128
  3. MEDROL [Concomitant]
     Active Substance: METHYLPREDNISOLONE
     Indication: Product used for unknown indication
  4. ASPIRIN [Concomitant]
     Active Substance: ASPIRIN
     Indication: Product used for unknown indication
     Dosage: 1X/D 1 TAB OR (MO)
     Dates: start: 20200615
  5. BUMETANIDE [Concomitant]
     Active Substance: BUMETANIDE
     Indication: Product used for unknown indication
     Dosage: 1X/D 1 TABL OR (MO) - IF NECESSARY
     Dates: start: 20211215
  6. DAFALGAN [Concomitant]
     Active Substance: ACETAMINOPHEN
     Indication: Product used for unknown indication
     Dosage: 4X/D 1 TABL OR (MO;MI;AV;NA) - MAX60MG/KG/DAY - IF NECESSARY.
     Dates: start: 20200615
  7. FERROUS SULFATE [Concomitant]
     Active Substance: FERROUS SULFATE
     Indication: Product used for unknown indication
     Dosage: 1X/D 1 TABL OR
     Dates: start: 20211014
  8. PANTOPRAZOLE SODIUM [Concomitant]
     Active Substance: PANTOPRAZOLE SODIUM
     Indication: Product used for unknown indication
     Dosage: 1X/D 2 TABS OR (7:30)
     Dates: start: 20200615
  9. ZOLPIDEM [Concomitant]
     Active Substance: ZOLPIDEM TARTRATE
     Indication: Product used for unknown indication
     Dosage: 1X/D 1 COMPR OR
     Dates: start: 20211215
  10. ZESTRIL [Concomitant]
     Active Substance: LISINOPRIL
     Indication: Product used for unknown indication
     Dosage: 1X/D 0.25 TABL OR (MO)
     Dates: start: 20211104
  11. TRAMADOL [Concomitant]
     Active Substance: TRAMADOL
     Indication: Product used for unknown indication
     Dosage: 10 ML 100 MG/ML: ;4X/D 15 DROPS OR (MO;MI;AV;NA)
     Dates: start: 20220608
  12. LEVOTHYROXINE [Concomitant]
     Active Substance: LEVOTHYROXINE
     Indication: Product used for unknown indication
     Dosage: 1X/D 1 TABL OR (7) - MIN 30 MIN BEFORE BREAKFAST
     Dates: start: 20200615
  13. BISOPROLOL [Concomitant]
     Active Substance: BISOPROLOL
     Indication: Product used for unknown indication
     Dosage: 2X/D 0.5 TABL OR (MO;AV)
     Dates: start: 20211104
  14. MOVICOL [Concomitant]
     Active Substance: POLYETHYLENE GLYCOL 3350\POTASSIUM CHLORIDE\SODIUM BICARBONATE\SODIUM CHLORIDE
     Indication: Product used for unknown indication
     Dosage: 2X/D 1 BAG OR (MO;AV)
     Dates: start: 20200615

REACTIONS (7)
  - Pleuropericarditis [Not Recovered/Not Resolved]
  - Cardiac tamponade [Not Recovered/Not Resolved]
  - Hypotension [Unknown]
  - Full blood count abnormal [Unknown]
  - Lymph node pain [Unknown]
  - Haematoma [Unknown]
  - Ventricular fibrillation [Not Recovered/Not Resolved]
